FAERS Safety Report 7549289-0 (Version None)
Quarter: 2011Q2

REPORT INFORMATION
  Report Type: 
  Country: None (occurrence: None)
  Receive Date: 20110615
  Receipt Date: 20001120
  Transmission Date: 20111010
  Serious: Yes (Other)
  Sender: FDA-Public Use
  Company Number: PHHO2000BR11224

PATIENT
  Age: 32 Year
  Sex: Female

DRUGS (1)
  1. COMBIPATCH [Suspect]
     Dosage: 1 DF, BID
     Route: 062

REACTIONS (1)
  - ANEURYSM [None]
